FAERS Safety Report 5062815-9 (Version None)
Quarter: 2006Q3

REPORT INFORMATION
  Report Type: 
  Country: None (occurrence: None)
  Receive Date: 20060724
  Receipt Date: 20060711
  Transmission Date: 20061208
  Serious: Yes (Hospitalization)
  Sender: FDA-Public Use
  Company Number: 2006085280

PATIENT
  Age: 55 Year
  Sex: Male

DRUGS (2)
  1. DIFLUCAN [Suspect]
     Indication: ORAL CANDIDIASIS
     Dosage: 50 MG (50 MG, 1 IN 1 D), ORAL
     Route: 048
     Dates: start: 20060515, end: 20060519
  2. TEMOZOLOMIDE (TEMOZOLOMIDE) [Suspect]
     Indication: GLIOBLASTOMA MULTIFORME
     Dosage: (75 MG/M2, 1 IN 1 D), ORAL
     Route: 048
     Dates: start: 20060406, end: 20060517

REACTIONS (7)
  - GAMMA-GLUTAMYLTRANSFERASE INCREASED [None]
  - HEPATIC ENZYME INCREASED [None]
  - HYPOALBUMINAEMIA [None]
  - JAUNDICE [None]
  - PROTHROMBIN TIME PROLONGED [None]
  - PRURITUS [None]
  - TRANSAMINASES INCREASED [None]
